FAERS Safety Report 15482369 (Version 2)
Quarter: 2018Q4

REPORT INFORMATION
  Report Type: Spontaneous
  Country: US (occurrence: US)
  Receive Date: 20181010
  Receipt Date: 20181127
  Transmission Date: 20190205
  Serious: Yes (Hospitalization)
  Sender: FDA-Public Use
  Company Number: US-PFIZER INC-2018404259

PATIENT
  Age: 67 Year
  Sex: Male

DRUGS (9)
  1. TACROLIMUS. [Interacting]
     Active Substance: TACROLIMUS
     Dosage: 1.5 MG/KG, UNK (DRIP WAS DECREASED TO 1.5MG/KG)
     Route: 041
  2. TACROLIMUS. [Interacting]
     Active Substance: TACROLIMUS
     Dosage: 1.0 MG/KG, UNK ( DRIP WAS DECREASED TO 1.0MG/KG)
     Route: 041
  3. TACROLIMUS. [Interacting]
     Active Substance: TACROLIMUS
     Dosage: 0.5 MG, 2X/DAY (DOSE WAS CUT IN HALF TO 0.5MG TWICE A DAY)
     Route: 048
  4. TACROLIMUS. [Suspect]
     Active Substance: TACROLIMUS
     Indication: STEM CELL TRANSPLANT
     Dosage: 1.8 MG/KG, UNK, (CONTINUOUS TACROLIMUS INFUSION DRIP ON TRANSPLANT DAY-2)
     Route: 041
  5. TACROLIMUS. [Interacting]
     Active Substance: TACROLIMUS
     Indication: STEM CELL TRANSPLANT
     Dosage: 1 MG, 2X/DAY (ON DAY +14)
     Route: 048
  6. POSACONAZOLE [Interacting]
     Active Substance: POSACONAZOLE
     Indication: ANTIFUNGAL PROPHYLAXIS
     Dosage: UNK
  7. ACICLOVIR [Concomitant]
     Active Substance: ACYCLOVIR
     Indication: PROPHYLAXIS
     Dosage: UNK
  8. MARIJUANA [Interacting]
     Active Substance: CANNABIS SATIVA SUBSP. INDICA TOP
     Dosage: UNK (EDIBLE MARIJUANA GUMMIES)
  9. LEVOFLOXACIN. [Concomitant]
     Active Substance: LEVOFLOXACIN
     Indication: PROPHYLAXIS
     Dosage: UNK

REACTIONS (4)
  - Drug level above therapeutic [Recovered/Resolved]
  - Drug interaction [Unknown]
  - Toxicity to various agents [Recovered/Resolved]
  - Product use in unapproved indication [Unknown]
